FAERS Safety Report 9107574 (Version 1)
Quarter: 2013Q1

REPORT INFORMATION
  Report Type: Spontaneous
  Country: CH (occurrence: CH)
  Receive Date: 20130221
  Receipt Date: 20130221
  Transmission Date: 20140127
  Serious: Yes (Death)
  Sender: FDA-Public Use
  Company Number: CH-ROCHE-1193363

PATIENT
  Age: 60 Year
  Sex: Female

DRUGS (4)
  1. ERLOTINIB [Suspect]
     Indication: LUNG ADENOCARCINOMA
     Route: 065
  2. BEVACIZUMAB [Suspect]
     Indication: LUNG ADENOCARCINOMA
     Route: 065
  3. CISPLATIN [Suspect]
     Indication: LUNG ADENOCARCINOMA
     Route: 065
  4. PEMETREXED [Suspect]
     Indication: LUNG ADENOCARCINOMA
     Route: 065

REACTIONS (2)
  - Metastases to liver [Fatal]
  - Drug ineffective [Unknown]
